FAERS Safety Report 6542360-1 (Version None)
Quarter: 2010Q1

REPORT INFORMATION
  Report Type: 
  Country: None (occurrence: None)
  Receive Date: 20100114
  Receipt Date: 20100114
  Transmission Date: 20100710
  Serious: Yes (Disabling)
  Sender: FDA-Public Use
  Company Number: None

PATIENT
  Age: 60 Year
  Sex: Male
  Weight: 108.8633 kg

DRUGS (1)
  1. LEVAQUIN [Suspect]
     Indication: RESPIRATORY TRACT INFECTION
     Dosage: ONE TABLET- 500 MG. ONCE DAILY PO
     Route: 048
     Dates: start: 20100106, end: 20100112

REACTIONS (2)
  - PAIN IN EXTREMITY [None]
  - TENDON PAIN [None]
